FAERS Safety Report 19060870 (Version 2)
Quarter: 2021Q2

REPORT INFORMATION
  Report Type: Spontaneous
  Country: BE (occurrence: BE)
  Receive Date: 20210326
  Receipt Date: 20210413
  Transmission Date: 20210717
  Serious: Yes (Hospitalization)
  Sender: FDA-Public Use
  Company Number: BE-ROCHE-2795106

PATIENT
  Age: 60 Year
  Sex: Male
  Weight: 87.7 kg

DRUGS (17)
  1. EUSAPRIM [Concomitant]
     Active Substance: SULFAMETHOXAZOLE\TRIMETHOPRIM
     Dates: start: 20190715, end: 20190729
  2. AMLOR [Concomitant]
     Active Substance: AMLODIPINE BESYLATE
     Dates: start: 20190710, end: 20190724
  3. COMBIGAN [Concomitant]
     Active Substance: BRIMONIDINE TARTRATE\TIMOLOL MALEATE
     Dates: start: 20180531
  4. TACROLIMUS. [Suspect]
     Active Substance: TACROLIMUS
     Indication: RENAL TRANSPLANT
     Route: 048
     Dates: start: 20190518
  5. MYCOPHENOLATE MOFETIL. [Suspect]
     Active Substance: MYCOPHENOLATE MOFETIL
     Indication: RENAL TRANSPLANT
     Route: 048
     Dates: start: 20190518
  6. ZANTAC [Concomitant]
     Active Substance: RANITIDINE HYDROCHLORIDE
     Dates: start: 20190726, end: 20190726
  7. CLEXANE [Concomitant]
     Active Substance: ENOXAPARIN SODIUM
     Dates: start: 20190719, end: 20190814
  8. EMCONCOR [Concomitant]
     Active Substance: BISOPROLOL FUMARATE
     Dates: start: 20190710
  9. VALCYTE [Suspect]
     Active Substance: VALGANCICLOVIR HYDROCHLORIDE
     Indication: CYTOMEGALOVIRUS TEST POSITIVE
     Route: 065
  10. ASAFLOW [Concomitant]
     Active Substance: ASPIRIN
     Dates: start: 20190629
  11. PIPERACILLINE [Concomitant]
     Active Substance: PIPERACILLIN SODIUM
     Dates: start: 20190716, end: 20190728
  12. UNI DIAMICRON [Concomitant]
     Active Substance: GLICLAZIDE
     Dates: start: 20190730, end: 20190903
  13. ROCEPHINE [Concomitant]
     Active Substance: CEFTRIAXONE SODIUM
     Dates: start: 20190728, end: 20190909
  14. CYMEVENE [Suspect]
     Active Substance: GANCICLOVIR
     Indication: CYTOMEGALOVIRUS TEST POSITIVE
     Route: 065
  15. VANCOMYCINE [Concomitant]
     Active Substance: VANCOMYCIN
     Dates: start: 20190721, end: 20190723
  16. PARACETAMOL [Concomitant]
     Active Substance: ACETAMINOPHEN
     Dates: start: 20190726, end: 20190729
  17. MEDROL [Concomitant]
     Active Substance: METHYLPREDNISOLONE
     Dates: start: 20190622

REACTIONS (1)
  - Leukopenia [Recovered/Resolved]

NARRATIVE: CASE EVENT DATE: 20190813
